FAERS Safety Report 9239496 (Version 2)
Quarter: 2013Q2

REPORT INFORMATION
  Report Type: Spontaneous
  Country: DE (occurrence: DE)
  Receive Date: 20130418
  Receipt Date: 20130605
  Transmission Date: 20140414
  Serious: Yes (Other)
  Sender: FDA-Public Use
  Company Number: DE-ALLERGAN-1305260US

PATIENT
  Age: 69 Year
  Sex: Female

DRUGS (4)
  1. LUMIGAN [Suspect]
     Indication: GLAUCOMA
     Dosage: UNK UNK, QD
     Route: 047
     Dates: start: 20130315, end: 20130407
  2. LUMIGAN [Suspect]
     Indication: VISUAL FIELD DEFECT
  3. AZOPT [Concomitant]
     Indication: GLAUCOMA
     Dosage: UNK UNK, BID
  4. PILOMANN [Concomitant]
     Indication: GLAUCOMA
     Dosage: UNK UNK, QHS

REACTIONS (5)
  - Sudden hearing loss [Unknown]
  - Limb injury [Unknown]
  - Fall [Unknown]
  - Headache [Recovered/Resolved]
  - Nausea [Recovering/Resolving]
